FAERS Safety Report 24322751 (Version 1)
Quarter: 2024Q3

REPORT INFORMATION
  Report Type: Spontaneous
  Country: ES (occurrence: ES)
  Receive Date: 20240916
  Receipt Date: 20240916
  Transmission Date: 20241017
  Serious: Yes (Life-Threatening, Other)
  Sender: BAXTER
  Company Number: None

PATIENT
  Age: 25 Year
  Sex: Female

DRUGS (5)
  1. PROPOFOL [Suspect]
     Active Substance: PROPOFOL
     Indication: Induction of anaesthesia
     Dosage: DOSAGE TEXT: DOSE UNKNOWN, PROPOFOL (2373A)
     Route: 042
     Dates: start: 20231004
  2. FENTANYL [Suspect]
     Active Substance: FENTANYL\FENTANYL CITRATE
     Indication: Induction of anaesthesia
     Dosage: DOSAGE TEXT: DOSE UNKNOWN, FENTANYL (1543A)
     Route: 042
     Dates: start: 20231004
  3. ROCURONIUM [Suspect]
     Active Substance: ROCURONIUM BROMIDE
     Indication: Induction of anaesthesia
     Dosage: DOSAGE TEXT: DOSE UNKNOWN
     Route: 042
     Dates: start: 20231004
  4. RILAST [Concomitant]
     Active Substance: BUDESONIDE\FORMOTEROL
     Dosage: 1{DF}  FOR 12 HRS, DOSAGE TEXT: 1 INHALATION EVERY 12 HOURS (160 MICROGRAMS/4.5 MICROGRAMS/INHALATIO
     Dates: start: 20210712
  5. CHOLECALCIFEROL [Concomitant]
     Active Substance: CHOLECALCIFEROL
     Dosage: (25.000 UI 15 DAYS, DELTIUS 25.000 UI HARD CAPSULES, 4 CAPSULES
     Route: 048
     Dates: start: 20200311

REACTIONS (2)
  - Airway complication of anaesthesia [Recovered/Resolved]
  - Rash [Recovered/Resolved]

NARRATIVE: CASE EVENT DATE: 20231004
